FAERS Safety Report 9061784 (Version 3)
Quarter: 2013Q2

REPORT INFORMATION
  Report Type: Report from Study
  Country: US (occurrence: US)
  Receive Date: 20130204
  Receipt Date: 20130429
  Transmission Date: 20140414
  Serious: Yes (Other)
  Sender: FDA-Public Use
  Company Number: PHEH2013US002651

PATIENT
  Sex: Female

DRUGS (4)
  1. GLEEVEC [Suspect]
     Indication: CHRONIC MYELOID LEUKAEMIA
     Dosage: 400 MG, QD
     Route: 048
     Dates: start: 20070807
  2. CELEBREX [Concomitant]
     Dosage: 200 MG, QD
  3. APAP [Concomitant]
     Dosage: UNK UKN, UNK
  4. TRAMADOL [Concomitant]
     Dosage: UNK UKN, UNK

REACTIONS (19)
  - Fall [Unknown]
  - Intervertebral disc degeneration [Unknown]
  - Back pain [Unknown]
  - Foot fracture [Unknown]
  - Pneumonia [Unknown]
  - Gait disturbance [Unknown]
  - Groin pain [Unknown]
  - Oral pain [Unknown]
  - Streptococcal infection [Unknown]
  - Musculoskeletal chest pain [Unknown]
  - Asthenia [Unknown]
  - Fatigue [Unknown]
  - Diarrhoea [Unknown]
  - Flushing [Unknown]
  - Hypophagia [Unknown]
  - Oedema peripheral [Unknown]
  - Hyperhidrosis [Unknown]
  - Night sweats [Unknown]
  - Arthritis [Unknown]
